FAERS Safety Report 9566627 (Version 1)
Quarter: 2013Q3

REPORT INFORMATION
  Report Type: Spontaneous
  Country: BR (occurrence: BR)
  Receive Date: 20130930
  Receipt Date: 20130930
  Transmission Date: 20140515
  Serious: Yes (Hospitalization, Other)
  Sender: FDA-Public Use
  Company Number: PHHY2013BR109051

PATIENT
  Age: 85 Year
  Sex: Female

DRUGS (2)
  1. EXELON PATCH [Suspect]
     Indication: AMNESIA
     Dosage: 9.5 MG, 1 PATCH EVERY 24 HOURS
     Route: 062
     Dates: start: 201209
  2. EXELON PATCH [Suspect]
     Dosage: 13.3 MG, UNK
     Route: 062
     Dates: start: 20130914

REACTIONS (2)
  - Anaemia [Recovered/Resolved]
  - Eating disorder [Not Recovered/Not Resolved]
